FAERS Safety Report 11513180 (Version 1)
Quarter: 2015Q3

REPORT INFORMATION
  Report Type: Spontaneous
  Country: US (occurrence: None)
  Receive Date: 20150915
  Receipt Date: 20150915
  Transmission Date: 20151125
  Serious: Yes (Other)
  Sender: FDA-Public Use
  Company Number: None

PATIENT
  Age: 53 Year
  Sex: Female

DRUGS (1)
  1. HUMIRA [Suspect]
     Active Substance: ADALIMUMAB

REACTIONS (4)
  - Abdominal discomfort [None]
  - Cold sweat [None]
  - Insomnia [None]
  - Palpitations [None]

NARRATIVE: CASE EVENT DATE: 20150914
